FAERS Safety Report 14095093 (Version 1)
Quarter: 2017Q4

REPORT INFORMATION
  Report Type: Spontaneous
  Country: RO (occurrence: RO)
  Receive Date: 20171016
  Receipt Date: 20171016
  Transmission Date: 20180321
  Serious: Yes (Other)
  Sender: FDA-Public Use
  Company Number: RO-MYLANLABS-2017M1063823

PATIENT
  Age: 17 Year
  Sex: Male

DRUGS (12)
  1. RITONAVIR. [Concomitant]
     Active Substance: RITONAVIR
     Indication: HIV INFECTION CDC CATEGORY C
     Route: 065
     Dates: start: 200011
  2. ALLTERA [Suspect]
     Active Substance: LOPINAVIR\RITONAVIR
     Route: 065
     Dates: start: 200511
  3. ALLTERA [Suspect]
     Active Substance: LOPINAVIR\RITONAVIR
     Indication: HIV INFECTION CDC CATEGORY C
     Route: 065
     Dates: start: 200109
  4. LAMIVUDINE. [Concomitant]
     Active Substance: LAMIVUDINE
     Indication: HIV INFECTION CDC CATEGORY C
     Route: 065
     Dates: start: 199603
  5. STAVUDINE. [Suspect]
     Active Substance: STAVUDINE
     Indication: HIV INFECTION CDC CATEGORY C
     Route: 065
     Dates: start: 200109
  6. INDINAVIR [Concomitant]
     Active Substance: INDINAVIR
     Indication: HIV INFECTION CDC CATEGORY C
     Route: 065
     Dates: start: 199806
  7. DIDANOSINE. [Concomitant]
     Active Substance: DIDANOSINE
     Indication: HIV INFECTION CDC CATEGORY C
     Route: 065
     Dates: start: 200109
  8. ABACAVIR. [Concomitant]
     Active Substance: ABACAVIR
     Indication: HIV INFECTION CDC CATEGORY C
     Route: 065
     Dates: start: 200511
  9. ZIDOVUDINE. [Suspect]
     Active Substance: ZIDOVUDINE
     Indication: HIV INFECTION CDC CATEGORY C
     Route: 065
     Dates: start: 199806
  10. LAMIVUDINE. [Concomitant]
     Active Substance: LAMIVUDINE
     Route: 065
     Dates: start: 199806
  11. DIDANOSINE. [Concomitant]
     Active Substance: DIDANOSINE
     Route: 065
     Dates: start: 200511
  12. INDINAVIR [Concomitant]
     Active Substance: INDINAVIR
     Route: 065
     Dates: start: 200011

REACTIONS (4)
  - Coronary artery disease [Recovering/Resolving]
  - Dyslipidaemia [Recovering/Resolving]
  - Lipodystrophy acquired [Unknown]
  - Lipoatrophy [Not Recovered/Not Resolved]
